FAERS Safety Report 15711333 (Version 2)
Quarter: 2020Q3

REPORT INFORMATION
  Report Type: Spontaneous
  Country: KR (occurrence: KR)
  Receive Date: 20181211
  Receipt Date: 20200814
  Transmission Date: 20201102
  Serious: Yes (Hospitalization, Other)
  Sender: FDA-Public Use
  Company Number: KR-MYLANLABS-2018M1090219

PATIENT
  Age: 25 Year
  Sex: Male

DRUGS (1)
  1. DUTASTERIDE. [Suspect]
     Active Substance: DUTASTERIDE
     Indication: ALOPECIA
     Dosage: 0.5 MILLIGRAM, QOD
     Route: 065

REACTIONS (5)
  - Intracranial pressure increased [Recovering/Resolving]
  - Papilloedema [Recovering/Resolving]
  - Retinal haemorrhage [Recovering/Resolving]
  - Cerebral venous sinus thrombosis [Recovering/Resolving]
  - Cerebral venous thrombosis [Recovering/Resolving]
